FAERS Safety Report 10078469 (Version 1)
Quarter: 2014Q2

REPORT INFORMATION
  Report Type: Spontaneous
  Country: US (occurrence: None)
  Receive Date: 20140411
  Receipt Date: 20140411
  Transmission Date: 20141212
  Serious: No
  Sender: FDA-Public Use
  Company Number: 1713747-2014-99946

PATIENT
  Age: 41 Year
  Sex: Male
  Weight: 78 kg

DRUGS (2)
  1. DELFLEX [Suspect]
     Dosage: DAILY , INTRA-PERITONEAL
  2. LIBERTY CYCLER AND LIBERTY CYCLER CASSETTE [Concomitant]

REACTIONS (1)
  - Peritonitis [None]
